FAERS Safety Report 5721307-1 (Version None)
Quarter: 2008Q2

REPORT INFORMATION
  Report Type: 
  Country: None (occurrence: None)
  Receive Date: 20080429
  Receipt Date: 20080417
  Transmission Date: 20081010
  Serious: Yes (Hospitalization)
  Sender: FDA-Public Use
  Company Number: CA-BAYER-200811622BCC

PATIENT
  Age: 78 Year
  Sex: Female

DRUGS (12)
  1. ASPIRIN [Suspect]
     Indication: ACUTE CORONARY SYNDROME
     Route: 048
     Dates: start: 20060123, end: 20060127
  2. ENOXAPARIN SODIUM [Suspect]
     Indication: ACUTE CORONARY SYNDROME
     Dosage: TOTAL DAILY DOSE: 100 MG
     Route: 058
     Dates: start: 20060123, end: 20060126
  3. PLAVIX [Suspect]
     Indication: ACUTE CORONARY SYNDROME
     Route: 048
     Dates: start: 20060123, end: 20060126
  4. INTEGRILIN [Suspect]
     Indication: ACUTE CORONARY SYNDROME
     Route: 042
     Dates: start: 20060123, end: 20060126
  5. NITROGLYCERIN [Concomitant]
     Indication: CHEST PAIN
     Dosage: TOTAL DAILY DOSE: 0.8 MG
     Route: 062
     Dates: start: 20060123, end: 20060126
  6. ATORVASTATIN CALCIUM [Concomitant]
     Indication: DYSLIPIDAEMIA
     Route: 048
     Dates: start: 20060123, end: 20060127
  7. ALTACE [Concomitant]
     Route: 048
     Dates: start: 20060123, end: 20060128
  8. TIAZAC [Concomitant]
     Indication: HYPERTENSION
     Route: 048
     Dates: start: 20060124, end: 20060124
  9. TIAZAC [Concomitant]
     Route: 048
     Dates: start: 20060125
  10. RABEPRAZOLE SODIUM [Concomitant]
     Indication: PROPHYLAXIS
     Route: 048
     Dates: start: 20060124
  11. FLOVENT [Concomitant]
     Indication: ASTHMA
     Dosage: TOTAL DAILY DOSE: 4 PUFF
     Route: 055
  12. VENTOLIN [Concomitant]
     Indication: ASTHMA
     Dosage: AS USED: 2 PUFF
     Route: 055

REACTIONS (1)
  - CATHETER SITE HAEMORRHAGE [None]
